FAERS Safety Report 4587246-7 (Version None)
Quarter: 2005Q1

REPORT INFORMATION
  Report Type: 
  Country: None (occurrence: None)
  Receive Date: 20050218
  Receipt Date: 20050207
  Transmission Date: 20050727
  Serious: Yes (Hospitalization)
  Sender: FDA-Public Use
  Company Number: FR-GLAXOSMITHKLINE-B0370746A

PATIENT
  Age: 66 Year
  Sex: Male

DRUGS (4)
  1. ZOPHREN [Suspect]
     Indication: PROPHYLAXIS OF NAUSEA AND VOMITING
     Dosage: 1UNIT CYCLIC
     Route: 048
     Dates: start: 20041023, end: 20041023
  2. SOLUPRED [Suspect]
     Dosage: 1UNIT CYCLIC
     Route: 048
     Dates: start: 20041023, end: 20041023
  3. TAXOL [Suspect]
     Indication: LUNG NEOPLASM MALIGNANT
     Route: 042
     Dates: start: 20041021, end: 20041021
  4. CARBOPLATINE [Suspect]
     Indication: LUNG NEOPLASM MALIGNANT
     Route: 042
     Dates: start: 20041021, end: 20041021

REACTIONS (3)
  - ARTHRALGIA [None]
  - CHEST PAIN [None]
  - DYSPNOEA [None]
